FAERS Safety Report 6504969-0 (Version None)
Quarter: 2009Q4

REPORT INFORMATION
  Report Type: 
  Country: None (occurrence: None)
  Receive Date: 20091201
  Receipt Date: 20090106
  Transmission Date: 20100525
  Serious: Yes (Hospitalization)
  Sender: FDA-Public Use
  Company Number: 2009-189323-NL

PATIENT
  Age: 35 Year
  Sex: Female
  Weight: 68 kg

DRUGS (11)
  1. NUVARING [Suspect]
     Indication: CONTRACEPTION
     Dates: start: 20051001, end: 20060301
  2. NADOLOL [Concomitant]
  3. ATARAX [Concomitant]
  4. VALIUM [Concomitant]
  5. DARVOCET [Concomitant]
  6. CLOBETASOL PROPIONATE [Concomitant]
  7. FLUTICASONE PROPIONATE [Concomitant]
  8. ESCITALOPRAM OXALATE [Concomitant]
  9. LORATADINE [Concomitant]
  10. TRAZODONE HCL [Concomitant]
  11. HYDROXYZINE HCL [Concomitant]

REACTIONS (1)
  - PULMONARY EMBOLISM [None]
